FAERS Safety Report 4729870-4 (Version None)
Quarter: 2005Q3

REPORT INFORMATION
  Report Type: 
  Country: None (occurrence: None)
  Receive Date: 20050801
  Receipt Date: 20040204
  Transmission Date: 20060218
  Serious: No
  Sender: FDA-Public Use
  Company Number: US-BRISTOL-MYERS SQUIBB COMPANY-12497228

PATIENT
  Age: 28 Year
  Sex: Female
  Weight: 54 kg

DRUGS (6)
  1. CEENU [Suspect]
     Indication: BRAIN NEOPLASM
     Route: 048
     Dates: start: 20031204, end: 20031204
  2. VINCRISTINE [Suspect]
     Indication: BRAIN NEOPLASM
     Dosage: ALSO GIVEN ON 12-DEC AND 29-DEC.
     Route: 042
     Dates: start: 20031113, end: 20031113
  3. PROCARBAZINE [Suspect]
     Indication: BRAIN NEOPLASM
     Dosage: DAYS 14-28; ALSO GIVEN FROM 17-DEC TO 27-DEC
     Route: 048
     Dates: start: 20031030, end: 20031112
  4. ZOLOFT [Concomitant]
     Dates: start: 20030101, end: 20030101
  5. XANAX [Concomitant]
     Dates: start: 20030101, end: 20030101
  6. NEXIUM [Concomitant]
     Dates: start: 20030101, end: 20030101

REACTIONS (2)
  - NORMAL NEWBORN [None]
  - PREGNANCY [None]
